FAERS Safety Report 6759471-8 (Version None)
Quarter: 2010Q2

REPORT INFORMATION
  Report Type: 
  Country: None (occurrence: None)
  Receive Date: 20100603
  Receipt Date: 20100519
  Transmission Date: 20101027
  Serious: Yes (Other)
  Sender: FDA-Public Use
  Company Number: AUR-APL-2010-01344

PATIENT
  Age: 16 Year
  Sex: Female
  Weight: 75 kg

DRUGS (2)
  1. SUMATRIPTAN SUCCINATE [Suspect]
     Indication: MIGRAINE
     Dosage: 50MG, ORAL
     Route: 048
     Dates: start: 20100407, end: 20100407
  2. KEPPRA [Suspect]
     Indication: MYOCLONIC EPILEPSY
     Dosage: 1G, BID, ORAL
     Route: 047
     Dates: start: 20061101, end: 20100407

REACTIONS (2)
  - PANCREATITIS ACUTE [None]
  - THROMBOCYTOPENIA [None]
